FAERS Safety Report 14904006 (Version 1)
Quarter: 2018Q2

REPORT INFORMATION
  Report Type: Spontaneous
  Country: US (occurrence: US)
  Receive Date: 20180516
  Receipt Date: 20180516
  Transmission Date: 20180711
  Serious: No
  Sender: FDA-Public Use
  Company Number: US-COLLEGIUM PHARMACEUTICAL, INC.-2018CGM00059

PATIENT
  Age: 61 Year
  Weight: 88.89 kg

DRUGS (5)
  1. XTAMPZA ER [Suspect]
     Active Substance: OXYCODONE
     Indication: POST LAMINECTOMY SYNDROME
     Dosage: 36 MG, EVERY 12 HOURS WITH FOOD
     Dates: start: 20180208, end: 20180219
  2. OXYCODONE [Concomitant]
     Active Substance: OXYCODONE
     Dosage: 40 - 60 MG, UP TO 6X/DAY
  3. XTAMPZA ER [Suspect]
     Active Substance: OXYCODONE
     Indication: HEADACHE
  4. FENTANYL. [Concomitant]
     Active Substance: FENTANYL
     Dosage: 75 ?G, EVERY 72 HOURS
     Route: 062
  5. IBUPROFEN. [Concomitant]
     Active Substance: IBUPROFEN
     Dosage: 800 MG, 3X/DAY
     Route: 048

REACTIONS (3)
  - Vomiting projectile [Recovered/Resolved]
  - Nausea [Recovered/Resolved]
  - Drug ineffective [Recovered/Resolved]

NARRATIVE: CASE EVENT DATE: 20180208
